FAERS Safety Report 25077726 (Version 1)
Quarter: 2025Q1

REPORT INFORMATION
  Report Type: Spontaneous
  Country: CN (occurrence: CN)
  Receive Date: 20250314
  Receipt Date: 20250314
  Transmission Date: 20250409
  Serious: Yes (Hospitalization)
  Sender: NOVO NORDISK
  Company Number: CN-NOVOPROD-1385083

PATIENT
  Age: 72 Year
  Sex: Female
  Weight: 79 kg

DRUGS (1)
  1. NOVOLIN R [Suspect]
     Active Substance: INSULIN HUMAN
     Indication: Type 2 diabetes mellitus
     Dosage: 24 IU, BID(ONCE BEFORE BREAKFAST AND ONCE BEFORE DINNER)

REACTIONS (4)
  - Liver abscess [Recovered/Resolved]
  - Abdominal discomfort [Unknown]
  - Liver disorder [Unknown]
  - Adverse drug reaction [Unknown]
